FAERS Safety Report 18053537 (Version 2)
Quarter: 2021Q1

REPORT INFORMATION
  Report Type: Spontaneous
  Country: US (occurrence: US)
  Receive Date: 20200722
  Receipt Date: 20210324
  Transmission Date: 20210419
  Serious: Yes (Other)
  Sender: FDA-Public Use
  Company Number: US-TEVA-2020-US-1804179

PATIENT
  Age: 61 Year
  Sex: Female
  Weight: 83.9 kg

DRUGS (16)
  1. DIOVAN HCT [Suspect]
     Active Substance: HYDROCHLOROTHIAZIDE\VALSARTAN
     Indication: HYPERTENSION
     Route: 065
  2. VALSARTAN AUROBINDO [Suspect]
     Active Substance: VALSARTAN
     Indication: HYPERTENSION
     Dosage: DOSAGE : 320MG
     Route: 048
  3. VALSARTAN/HYDROCHLOROTHIAZIDE AUROBINDO [Suspect]
     Active Substance: HYDROCHLOROTHIAZIDE\VALSARTAN
     Dosage: 320MG/12.5MG
     Route: 065
  4. VALSARTAN/HYDROCHLOROTHIAZIDE AUROBINDO [Suspect]
     Active Substance: HYDROCHLOROTHIAZIDE\VALSARTAN
     Dosage: 160MG/12.5MG
     Route: 065
  5. VALSARTAN/HYDROCHLOROTHIAZIDE AUROBINDO [Suspect]
     Active Substance: HYDROCHLOROTHIAZIDE\VALSARTAN
     Dosage: 160MG/25MG
     Route: 065
  6. AMLODIPINE/VALSARTAN AUROBINDO [Suspect]
     Active Substance: AMLODIPINE\VALSARTAN
     Dosage: 10MG /320MG
     Route: 065
  7. CARDIZEM [Concomitant]
     Active Substance: DILTIAZEM HYDROCHLORIDE
     Route: 065
  8. ATORVASTATIN [Concomitant]
     Active Substance: ATORVASTATIN
     Indication: HYPERLIPIDAEMIA
     Dosage: 40 MILLIGRAM DAILY; ONGOING
     Route: 065
     Dates: start: 2013
  9. VALSARTAN/HYDROCHLOROTHIAZIDE AUROBINDO [Suspect]
     Active Substance: HYDROCHLOROTHIAZIDE\VALSARTAN
     Dosage: 80MG/12.5MG
     Route: 065
  10. METFORMIN [Concomitant]
     Active Substance: METFORMIN HYDROCHLORIDE
     Indication: DIABETES MELLITUS
     Dosage: 500 MG TWICE DAILY
     Route: 065
     Dates: start: 2013, end: 2016
  11. DIPHENOXYLATE/ATROPINE [Concomitant]
     Active Substance: ATROPINE\DIPHENOXYLATE
     Indication: DIARRHOEA
     Route: 065
  12. VALSARTAN/HYDROCHLOROTHIAZIDE AUROBINDO [Suspect]
     Active Substance: HYDROCHLOROTHIAZIDE\VALSARTAN
     Dosage: 320MG/25MG
     Route: 065
  13. AMLODIPINE/VALSARTAN AUROBINDO [Suspect]
     Active Substance: AMLODIPINE\VALSARTAN
     Dosage: 5MG /320MG
     Route: 065
  14. AMLODIPINE/VALSARTAN AUROBINDO [Suspect]
     Active Substance: AMLODIPINE\VALSARTAN
     Dosage: 5MG/160MG
     Route: 065
  15. AMLODIPINE/VALSARTAN AUROBINDO [Suspect]
     Active Substance: AMLODIPINE\VALSARTAN
     Dosage: 10MG/160MG
     Route: 065
  16. VENLAFAXINE HCL [Concomitant]
     Active Substance: VENLAFAXINE HYDROCHLORIDE
     Indication: ANXIETY
     Dosage: 37.5 MILLIGRAM DAILY; ONGOING
     Route: 065
     Dates: start: 2016

REACTIONS (1)
  - Plasma cell myeloma [Not Recovered/Not Resolved]
